FAERS Safety Report 6360832-X (Version None)
Quarter: 2009Q3

REPORT INFORMATION
  Report Type: 
  Country: None (occurrence: None)
  Receive Date: 20090918
  Receipt Date: 20090908
  Transmission Date: 20100115
  Serious: Yes (Other)
  Sender: FDA-Public Use
  Company Number: US-ROCHE-655421

PATIENT
  Age: 88 Year
  Sex: Female

DRUGS (5)
  1. BONIVA [Suspect]
     Indication: OSTEOPOROSIS
     Route: 048
     Dates: start: 20070101
  2. ZANTAC [Concomitant]
  3. SINGULAIR [Concomitant]
  4. TRAMADOL HCL [Concomitant]
  5. DILTIAZAM [Concomitant]

REACTIONS (2)
  - FALL [None]
  - WRIST FRACTURE [None]
